FAERS Safety Report 6218032-X (Version None)
Quarter: 2009Q2

REPORT INFORMATION
  Report Type: 
  Country: None (occurrence: None)
  Receive Date: 20090604
  Receipt Date: 20090604
  Transmission Date: 20091009
  Serious: Yes (Other)
  Sender: FDA-Public Use
  Company Number: None

PATIENT
  Age: 86 Year
  Sex: Female
  Weight: 79 kg

DRUGS (2)
  1. LEXISCAN -REGADENOSON- 0.4MG/5ML ASTELLAS [Suspect]
     Indication: CARDIAC STRESS TEST
     Dosage: 0.4MG 1X IV 1X
     Route: 042
     Dates: start: 20090527, end: 20090527
  2. LEXISCAN [Suspect]

REACTIONS (2)
  - ARTHRALGIA [None]
  - PAIN IN EXTREMITY [None]
